FAERS Safety Report 9579646 (Version 1)
Quarter: 2013Q4

REPORT INFORMATION
  Report Type: Spontaneous
  Country: US (occurrence: US)
  Receive Date: 20131002
  Receipt Date: 20131002
  Transmission Date: 20140711
  Serious: Yes (Other)
  Sender: FDA-Public Use
  Company Number: US-JNJFOC-20130911816

PATIENT
  Age: 59 Year
  Sex: Female
  Weight: 54.43 kg

DRUGS (2)
  1. ZYRTEC TABLETS IR 10MG [Suspect]
     Route: 048
  2. ZYRTEC TABLETS IR 10MG [Suspect]
     Indication: MULTIPLE ALLERGIES
     Route: 048
     Dates: start: 20130918, end: 20130918

REACTIONS (5)
  - Abdominal distension [Recovering/Resolving]
  - Hypersensitivity [Recovering/Resolving]
  - Myalgia [Recovering/Resolving]
  - Fatigue [Recovering/Resolving]
  - Abdominal pain upper [Recovering/Resolving]
